FAERS Safety Report 9612648 (Version 1)
Quarter: 2013Q4

REPORT INFORMATION
  Report Type: Spontaneous
  Country: GB (occurrence: GB)
  Receive Date: 20131010
  Receipt Date: 20131010
  Transmission Date: 20140711
  Serious: Yes (Other)
  Sender: FDA-Public Use
  Company Number: GB-PFIZER INC-2013284737

PATIENT
  Age: 42 Year
  Sex: Male

DRUGS (5)
  1. CHAMPIX [Suspect]
     Indication: SMOKING CESSATION THERAPY
     Dosage: 1 MG, 2X/DAY
     Route: 048
     Dates: start: 20130812, end: 20130902
  2. CARBIMAZOLE [Concomitant]
     Indication: HYPERTHYROIDISM
     Dosage: DOSE HAD VARIED DURING AUGUST FROM 10-15MG DAILY.
  3. METRONIDAZOLE [Concomitant]
     Indication: CLOSTRIDIUM COLITIS
     Dosage: UNK
     Dates: start: 201309
  4. PENICILLIN-V [Concomitant]
     Indication: OROPHARYNGEAL PAIN
     Dosage: UNK
     Dates: start: 201308
  5. PROPRANOLOL [Concomitant]
     Dosage: STOPPED BEFORE AUGUST
     Dates: end: 2013

REACTIONS (3)
  - Depressed mood [Recovered/Resolved]
  - Headache [Recovered/Resolved]
  - Apathy [Recovered/Resolved]
